FAERS Safety Report 7396829-0 (Version None)
Quarter: 2011Q2

REPORT INFORMATION
  Report Type: 
  Country: None (occurrence: None)
  Receive Date: 20110406
  Receipt Date: 20110401
  Transmission Date: 20111010
  Serious: Yes (Hospitalization, Other)
  Sender: FDA-Public Use
  Company Number: GB-TEVA-272704ISR

PATIENT
  Age: 50 Year
  Sex: Female

DRUGS (2)
  1. CLOZAPINE [Interacting]
     Indication: SCHIZOPHRENIA
     Dosage: 50 MG MANE AND 300 MG NOCTE
     Route: 048
     Dates: start: 19970402
  2. CLARITHROMYCIN [Suspect]
     Indication: LOWER RESPIRATORY TRACT INFECTION
     Dates: end: 20110113

REACTIONS (8)
  - BLOOD PRESSURE INCREASED [None]
  - DRUG INTERACTION [None]
  - H1N1 INFLUENZA [None]
  - DYSPNOEA [None]
  - LOWER RESPIRATORY TRACT INFECTION [None]
  - CONFUSIONAL STATE [None]
  - HEART RATE INCREASED [None]
  - OXYGEN SATURATION DECREASED [None]
